FAERS Safety Report 18073910 (Version 1)
Quarter: 2020Q3

REPORT INFORMATION
  Report Type: Spontaneous
  Country: FR (occurrence: FR)
  Receive Date: 20200727
  Receipt Date: 20200727
  Transmission Date: 20201103
  Serious: Yes (Hospitalization)
  Sender: FDA-Public Use
  Company Number: FR-PFIZER INC-2020282931

PATIENT
  Age: 57 Year
  Sex: Male
  Weight: 76 kg

DRUGS (3)
  1. GEMTUZUMAB OZOGAMICIN [Concomitant]
     Active Substance: GEMTUZUMAB OZOGAMICIN
     Dosage: UNK
     Route: 041
     Dates: start: 20200306, end: 20200316
  2. CYTARABINE. [Suspect]
     Active Substance: CYTARABINE
     Indication: LEUKAEMIA
     Dosage: UNK
     Route: 041
     Dates: start: 20200306, end: 20200314
  3. DOXORUBICIN [Concomitant]
     Active Substance: DOXORUBICIN
     Indication: LYMPHOMA
     Dosage: UNK
     Route: 041
     Dates: start: 201808, end: 201901

REACTIONS (2)
  - Cardiomyopathy [Recovered/Resolved with Sequelae]
  - Ventricular extrasystoles [Recovered/Resolved]

NARRATIVE: CASE EVENT DATE: 20200314
